FAERS Safety Report 19846433 (Version 2)
Quarter: 2021Q4

REPORT INFORMATION
  Report Type: Spontaneous
  Country: US (occurrence: US)
  Receive Date: 20210917
  Receipt Date: 20211004
  Transmission Date: 20220303
  Serious: No
  Sender: FDA-Public Use
  Company Number: US-TEVA-2021-US-1953394

PATIENT
  Age: 44 Year
  Sex: Female

DRUGS (3)
  1. MODAFINIL [Suspect]
     Active Substance: MODAFINIL
     Indication: Feeling abnormal
     Route: 065
     Dates: start: 20210804
  2. MODAFINIL [Suspect]
     Active Substance: MODAFINIL
     Indication: Memory impairment
  3. MODAFINIL [Suspect]
     Active Substance: MODAFINIL
     Indication: Disturbance in attention

REACTIONS (2)
  - Alopecia [Unknown]
  - Product use in unapproved indication [Unknown]

NARRATIVE: CASE EVENT DATE: 20210801
